FAERS Safety Report 18387190 (Version 9)
Quarter: 2021Q3

REPORT INFORMATION
  Report Type: Spontaneous
  Country: IT (occurrence: IT)
  Receive Date: 20201015
  Receipt Date: 20210716
  Transmission Date: 20211014
  Serious: Yes (Hospitalization, Other)
  Sender: FDA-Public Use
  Company Number: NVSC2020IT275769

PATIENT
  Age: 7 Year
  Sex: Female

DRUGS (11)
  1. IBUPROFEN. [Suspect]
     Active Substance: IBUPROFEN
     Indication: RASH VESICULAR
     Dosage: UNK
     Route: 048
  2. AMOXICILLIN TRIHYDRATE,POTASSIUM CLAVULANATE [Suspect]
     Active Substance: AMOXICILLIN\CLAVULANATE POTASSIUM
     Indication: RASH VESICULAR
     Dosage: UNK
     Route: 048
  3. AMOXICILLIN TRIHYDRATE,POTASSIUM CLAVULANATE [Suspect]
     Active Substance: AMOXICILLIN\CLAVULANATE POTASSIUM
     Indication: PYREXIA
  4. AMOXICILLIN TRIHYDRATE,POTASSIUM CLAVULANATE [Suspect]
     Active Substance: AMOXICILLIN\CLAVULANATE POTASSIUM
     Indication: SYMPTOMATIC TREATMENT
  5. AMOXICILLIN TRIHYDRATE,POTASSIUM CLAVULANATE [Suspect]
     Active Substance: AMOXICILLIN\CLAVULANATE POTASSIUM
     Indication: MUCOSAL INFLAMMATION
  6. AMOXICILLIN TRIHYDRATE,POTASSIUM CLAVULANATE [Suspect]
     Active Substance: AMOXICILLIN\CLAVULANATE POTASSIUM
     Indication: STOMATITIS
  7. IBUPROFEN. [Suspect]
     Active Substance: IBUPROFEN
     Indication: PYREXIA
  8. AMOXICILLIN TRIHYDRATE,POTASSIUM CLAVULANATE [Suspect]
     Active Substance: AMOXICILLIN\CLAVULANATE POTASSIUM
     Indication: NIKOLSKY^S SIGN
  9. IBUPROFEN. [Suspect]
     Active Substance: IBUPROFEN
     Indication: SYMPTOMATIC TREATMENT
  10. IBUPROFEN. [Suspect]
     Active Substance: IBUPROFEN
     Indication: STOMATITIS
  11. IBUPROFEN. [Suspect]
     Active Substance: IBUPROFEN
     Indication: NIKOLSKY^S SIGN

REACTIONS (10)
  - Nikolsky^s sign [Recovered/Resolved]
  - Stomatitis [Recovered/Resolved]
  - Rash vesicular [Recovered/Resolved]
  - Product use issue [Unknown]
  - Mucosal inflammation [Recovered/Resolved]
  - Rash [Recovered/Resolved]
  - Pyrexia [Recovered/Resolved]
  - Toxic epidermal necrolysis [Recovered/Resolved]
  - Condition aggravated [Recovered/Resolved]
  - Drug ineffective [Unknown]
